FAERS Safety Report 22213577 (Version 1)
Quarter: 2023Q2

REPORT INFORMATION
  Report Type: Spontaneous
  Country: JP (occurrence: None)
  Receive Date: 20230414
  Receipt Date: 20230414
  Transmission Date: 20230721
  Serious: Yes (Hospitalization)
  Sender: FDA-Public Use
  Company Number: 2023A083421

PATIENT
  Age: 87 Year
  Sex: Male

DRUGS (17)
  1. DAPAGLIFLOZIN [Suspect]
     Active Substance: DAPAGLIFLOZIN
     Indication: Cardiac failure chronic
     Route: 048
     Dates: start: 20220109, end: 20220303
  2. LOKELMA [Concomitant]
     Active Substance: SODIUM ZIRCONIUM CYCLOSILICATE
     Dosage: DOSE UNKNOWN
     Route: 048
  3. DOBUTAMINE [Concomitant]
     Active Substance: DOBUTAMINE HYDROCHLORIDE
     Dosage: DOSE UNKNOWN
  4. PRECEDEX [Concomitant]
     Active Substance: DEXMEDETOMIDINE HYDROCHLORIDE
     Dosage: DOSE UNKNOWN
  5. HEPARIN [Concomitant]
     Active Substance: HEPARIN SODIUM
     Dosage: DOSE UNKNOWN
  6. AMPICILLIN AND SULBACTAM [Concomitant]
     Active Substance: AMPICILLIN SODIUM\SULBACTAM SODIUM
     Dosage: DOSE UNKNOWN
  7. WARFARIN [Concomitant]
     Active Substance: WARFARIN
     Dosage: DOSE UNKNOWN
  8. ASPIRIN [Concomitant]
     Active Substance: ASPIRIN
     Dosage: DOSE UNKNOWN
  9. AZOSEMIDE [Concomitant]
     Active Substance: AZOSEMIDE
     Dosage: DOSE UNKNOWN
  10. SPIRONOLACTONE [Concomitant]
     Active Substance: SPIRONOLACTONE
     Dosage: DOSE UNKNOWN
  11. SAMSCA [Concomitant]
     Active Substance: TOLVAPTAN
     Dosage: DOSE UNKNOWN
  12. BISOPROLOL [Concomitant]
     Active Substance: BISOPROLOL
     Dosage: DOSE UNKNOWN
     Route: 062
  13. FEBUXOSTAT [Concomitant]
     Active Substance: FEBUXOSTAT
     Dosage: DOSE UNKNOWN
  14. ATORVASTATIN [Concomitant]
     Active Substance: ATORVASTATIN
     Dosage: DOSE UNKNOWN
  15. SILODOSIN [Concomitant]
     Active Substance: SILODOSIN
     Dosage: DOSE UNKNOWN
  16. MIYA-BM [Concomitant]
     Active Substance: CLOSTRIDIUM BUTYRICUM SPORES STRAIN M-55
     Dosage: DOSE UNKNOWN
  17. AMIODARONE HYDROCHLORIDE [Concomitant]
     Active Substance: AMIODARONE HYDROCHLORIDE
     Dosage: DOSE UNKNOWN

REACTIONS (2)
  - Cardiac failure [Unknown]
  - Renal impairment [Unknown]

NARRATIVE: CASE EVENT DATE: 20220101
